FAERS Safety Report 6431814-4 (Version None)
Quarter: 2009Q4

REPORT INFORMATION
  Report Type: 
  Country: None (occurrence: None)
  Receive Date: 20091104
  Receipt Date: 20091027
  Transmission Date: 20100525
  Serious: Yes (Other)
  Sender: FDA-Public Use
  Company Number: 2009TJ0239

PATIENT
  Age: 52 Year
  Sex: Male

DRUGS (1)
  1. TWINJECT 0.3 [Suspect]
     Indication: ANAPHYLACTIC REACTION
     Dosage: 0.3MG, AS NEEDED
     Dates: start: 20091024, end: 20091024

REACTIONS (2)
  - PRODUCT QUALITY ISSUE [None]
  - SYRINGE ISSUE [None]
